FAERS Safety Report 25434239 (Version 3)
Quarter: 2025Q3

REPORT INFORMATION
  Report Type: Spontaneous
  Country: GB (occurrence: GB)
  Receive Date: 20250613
  Receipt Date: 20250808
  Transmission Date: 20251021
  Serious: Yes (Other)
  Sender: PFIZER
  Company Number: GB-PFIZER INC-PV202500068282

PATIENT
  Age: 12 Year
  Sex: Male

DRUGS (2)
  1. NGENLA [Suspect]
     Active Substance: SOMATROGON-GHLA
     Indication: Growth hormone deficiency
     Dosage: 12 MG, WEEKLY (HALF A DOSE)
     Route: 058
     Dates: start: 20250526
  2. NGENLA [Suspect]
     Active Substance: SOMATROGON-GHLA
     Dosage: 24 MG, WEEKLY
     Route: 058
     Dates: start: 20250602

REACTIONS (7)
  - Heart rate decreased [Recovered/Resolved]
  - Heart rate increased [Recovered/Resolved]
  - Oropharyngeal discomfort [Recovered/Resolved]
  - Nausea [Not Recovered/Not Resolved]
  - Depressed mood [Not Recovered/Not Resolved]
  - Device use error [Unknown]
  - Incorrect dose administered by device [Unknown]

NARRATIVE: CASE EVENT DATE: 20250101
